FAERS Safety Report 23982658 (Version 1)
Quarter: 2024Q2

REPORT INFORMATION
  Report Type: Spontaneous
  Country: GB (occurrence: GB)
  Receive Date: 20240617
  Receipt Date: 20240617
  Transmission Date: 20240716
  Serious: Yes (Other)
  Sender: FDA-Public Use
  Company Number: GB-WOODWARD-2024-UK-000113

PATIENT
  Sex: Male

DRUGS (1)
  1. DUTASTERIDE\TAMSULOSIN HYDROCHLORIDE [Suspect]
     Active Substance: DUTASTERIDE\TAMSULOSIN HYDROCHLORIDE
     Indication: Benign prostatic hyperplasia
     Dosage: UNK UNK, QD (0.5MG/0.4MG ONE DAILY)
     Dates: start: 20231205, end: 20240601

REACTIONS (3)
  - Dysphagia [Unknown]
  - Nightmare [Recovering/Resolving]
  - Dyspnoea [Recovering/Resolving]
